FAERS Safety Report 7033856-7 (Version None)
Quarter: 2010Q4

REPORT INFORMATION
  Report Type: 
  Country: None (occurrence: None)
  Receive Date: 20101007
  Receipt Date: 20101004
  Transmission Date: 20110411
  Serious: Yes (Other)
  Sender: FDA-Public Use
  Company Number: US-AMGEN-QUU375964

PATIENT
  Sex: Female

DRUGS (7)
  1. ENBREL [Suspect]
     Indication: PSORIASIS
     Route: 058
     Dates: start: 20030423, end: 20100922
  2. ENBREL [Suspect]
     Indication: PSORIATIC ARTHROPATHY
  3. ENBREL [Suspect]
     Indication: RHEUMATOID ARTHRITIS
  4. SULFASALAZINE [Concomitant]
  5. METHOTREXATE [Concomitant]
     Dates: start: 20010201
  6. REMICADE [Concomitant]
  7. SIMPONI [Concomitant]

REACTIONS (20)
  - BACK PAIN [None]
  - BRONCHITIS [None]
  - C-REACTIVE PROTEIN INCREASED [None]
  - CARDIOMEGALY [None]
  - CHOKING [None]
  - CHRONIC OBSTRUCTIVE PULMONARY DISEASE [None]
  - DIABETES MELLITUS [None]
  - GAIT DISTURBANCE [None]
  - HYPERSENSITIVITY [None]
  - INJECTION SITE PAIN [None]
  - INJECTION SITE PRURITUS [None]
  - MALAISE [None]
  - OEDEMA PERIPHERAL [None]
  - PLEURISY [None]
  - RASH [None]
  - RHEUMATOID ARTHRITIS [None]
  - SKIN BACTERIAL INFECTION [None]
  - SKIN LESION [None]
  - THROAT TIGHTNESS [None]
  - UPPER RESPIRATORY TRACT INFECTION [None]
